FAERS Safety Report 5147825-5 (Version None)
Quarter: 2006Q4

REPORT INFORMATION
  Report Type: 
  Country: None (occurrence: None)
  Receive Date: 20061107
  Receipt Date: 20061107
  Transmission Date: 20070319
  Serious: Yes (Other)
  Sender: FDA-Public Use
  Company Number: None

PATIENT
  Age: 38 Year
  Sex: Female
  Weight: 81.6475 kg

DRUGS (1)
  1. PAROXETINE HCL [Suspect]
     Indication: DEPRESSION
     Dosage: 20 MG. ONCE DAILY
     Dates: start: 20060322, end: 20061101

REACTIONS (3)
  - CRYING [None]
  - HOMICIDAL IDEATION [None]
  - SUICIDAL IDEATION [None]
